FAERS Safety Report 6517137-3 (Version None)
Quarter: 2009Q4

REPORT INFORMATION
  Report Type: 
  Country: None (occurrence: None)
  Receive Date: 20091223
  Receipt Date: 20091215
  Transmission Date: 20100525
  Serious: Yes (Hospitalization, Other)
  Sender: FDA-Public Use
  Company Number: US-ELI_LILLY_AND_COMPANY-US200703004180

PATIENT
  Sex: Male

DRUGS (1)
  1. ZYPREXA [Suspect]
     Indication: DEPRESSION
     Dosage: 10 MG, 3/D
     Dates: start: 20030101, end: 20030101

REACTIONS (9)
  - AMNESIA [None]
  - DIABETIC COMA [None]
  - GAIT DISTURBANCE [None]
  - HYPERGLYCAEMIA [None]
  - INJECTION SITE PAIN [None]
  - OVERDOSE [None]
  - PANCREATIC DISORDER [None]
  - TYPE 1 DIABETES MELLITUS [None]
  - VISUAL ACUITY REDUCED [None]
